FAERS Safety Report 8784354 (Version 1)
Quarter: 2012Q4

REPORT INFORMATION
  Report Type: 
  Country: US (occurrence: US)
  Receive Date: 20120913
  Receipt Date: 20120913
  Transmission Date: 20130627
  Serious: Yes (Hospitalization, Other)
  Sender: FDA-Public Use
  Company Number: US-009507513-2010SP005950

PATIENT

DRUGS (4)
  1. NUVARING [Suspect]
     Indication: CONTRACEPTION
     Route: 067
     Dates: start: 20080201, end: 20080303
  2. PROVENTIL [Concomitant]
     Indication: PRODUCT USED FOR UNKNOWN INDICATION
     Dosage: UNK UNK, PRN
  3. FLOVENT [Concomitant]
     Indication: RESPIRATORY DISORDER
     Route: 055
     Dates: start: 1994
  4. METOPROLOL [Concomitant]
     Indication: HYPERTENSION
     Dates: start: 2000

REACTIONS (13)
  - Dyspnoea [Unknown]
  - Deep vein thrombosis [Not Recovered/Not Resolved]
  - Pulmonary embolism [Unknown]
  - Chest discomfort [Unknown]
  - Microcytic anaemia [Not Recovered/Not Resolved]
  - Vitamin D deficiency [Recovering/Resolving]
  - Dysphagia [Unknown]
  - Gastrooesophageal reflux disease [Recovering/Resolving]
  - Anxiety [Unknown]
  - Panic attack [Unknown]
  - Oesophageal spasm [Unknown]
  - Costochondritis [Unknown]
  - Dysmenorrhoea [Not Recovered/Not Resolved]
